FAERS Safety Report 5952522-X (Version None)
Quarter: 2008Q4

REPORT INFORMATION
  Report Type: 
  Country: None (occurrence: None)
  Receive Date: 20081113
  Receipt Date: 20081105
  Transmission Date: 20090506
  Serious: Yes (Other)
  Sender: FDA-Public Use
  Company Number: FR-PFIZER INC-2008093847

PATIENT
  Age: 57 Year
  Sex: Male

DRUGS (2)
  1. TAHOR [Suspect]
     Dates: start: 20081001, end: 20081102
  2. LAMOTRIGINE [Concomitant]

REACTIONS (3)
  - BONE FISSURE [None]
  - DIZZINESS [None]
  - FALL [None]
